FAERS Safety Report 5123938-9 (Version None)
Quarter: 2006Q3

REPORT INFORMATION
  Report Type: 
  Country: None (occurrence: None)
  Receive Date: 20060811
  Receipt Date: 20060615
  Transmission Date: 20061208
  Serious: No
  Sender: FDA-Public Use
  Company Number: S06-USA-02324-01

PATIENT
  Age: 27 Year
  Sex: Male

DRUGS (15)
  1. NAMENDA [Suspect]
     Indication: AMNESIA
     Dosage: 5 MG BID PO
     Route: 048
     Dates: start: 20060601
  2. NAMENDA [Suspect]
     Indication: DEPRESSION
     Dosage: 5 MG BID PO
     Route: 048
     Dates: start: 20060601
  3. NAMENDA [Suspect]
     Indication: SCHIZOPHRENIA
     Dosage: 5 MG BID PO
     Route: 048
     Dates: start: 20060601
  4. NAMENDA [Suspect]
     Indication: AMNESIA
     Dosage: 5 MG QD PO
     Route: 048
     Dates: start: 20060601, end: 20060601
  5. NAMENDA [Suspect]
     Indication: DEPRESSION
     Dosage: 5 MG QD PO
     Route: 048
     Dates: start: 20060601, end: 20060601
  6. NAMENDA [Suspect]
     Indication: SCHIZOPHRENIA
     Dosage: 5 MG QD PO
     Route: 048
     Dates: start: 20060601, end: 20060601
  7. PAXIL CR [Concomitant]
  8. WELLBUTRIN [Concomitant]
  9. EFFEXOR [Concomitant]
  10. SEROQUEL [Concomitant]
  11. ARICEPT [Concomitant]
  12. XANAX [Concomitant]
  13. NEXIUM [Concomitant]
  14. ATENOLOL [Concomitant]
  15. ZYRTEC [Concomitant]

REACTIONS (1)
  - SEXUAL DYSFUNCTION [None]
